FAERS Safety Report 8517141-X (Version None)
Quarter: 2012Q3

REPORT INFORMATION
  Report Type: 
  Country: None (occurrence: None)
  Receive Date: 20120706
  Receipt Date: 20120620
  Transmission Date: 20120928
  Serious: Yes (Hospitalization)
  Sender: FDA-Public Use
  Company Number: TPA2012A04040

PATIENT
  Age: 58 Year
  Sex: Female
  Weight: 127.0072 kg

DRUGS (4)
  1. EDARBI [Suspect]
     Indication: HYPERTENSION
     Dosage: 80 MG, 1 IN 1 D, PER ORAL
     Route: 048
     Dates: start: 20120601, end: 20120601
  2. HYDROCHLOROTHIAZIDE [Concomitant]
  3. EDARBYCLOR [Suspect]
     Indication: HYPERTENSION
     Dosage: 1 IN 1 D, PER ORAL
     Route: 048
     Dates: start: 20120606, end: 20120610
  4. EDARBYCLOR [Suspect]
     Indication: HYPERTENSION
     Dosage: 1 IN 1 D, PER ORAL
     Route: 048
     Dates: start: 20120530, end: 20120605

REACTIONS (6)
  - HYPERACUSIS [None]
  - HEART RATE INCREASED [None]
  - SOMNOLENCE [None]
  - PALPITATIONS [None]
  - DIZZINESS [None]
  - DRUG INEFFECTIVE [None]
